FAERS Safety Report 5623826-5 (Version None)
Quarter: 2008Q1

REPORT INFORMATION
  Report Type: 
  Country: None (occurrence: None)
  Receive Date: 20080207
  Receipt Date: 20080124
  Transmission Date: 20080703
  Serious: Yes (Other)
  Sender: FDA-Public Use
  Company Number: 07-002352

PATIENT
  Age: 45 Year
  Sex: Female
  Weight: 71.7 kg

DRUGS (4)
  1. FEMRING [Suspect]
     Indication: HORMONE REPLACEMENT THERAPY
     Dosage: 0.05 MG,QD; VAGINAL
     Route: 067
     Dates: start: 20070221, end: 20070406
  2. CENESTIN [Concomitant]
  3. FLEXERIL /00428401/ (CYCLOBENZAPRINE HYDROCHLORIDE) TABLET, 10 MG [Concomitant]
  4. IMITREX /01044801/ (SUMATRIPTAN) TABLET), 100 MG [Concomitant]

REACTIONS (26)
  - ABDOMINAL DISCOMFORT [None]
  - ABDOMINAL DISTENSION [None]
  - ABDOMINAL PAIN [None]
  - ABDOMINAL TENDERNESS [None]
  - ALANINE AMINOTRANSFERASE INCREASED [None]
  - ANOREXIA [None]
  - APHASIA [None]
  - BALANCE DISORDER [None]
  - BLOOD GLUCOSE INCREASED [None]
  - BREAST TENDERNESS [None]
  - CONFUSIONAL STATE [None]
  - DECREASED APPETITE [None]
  - DEPRESSION [None]
  - DIZZINESS [None]
  - DYSARTHRIA [None]
  - FLUID RETENTION [None]
  - LIBIDO DECREASED [None]
  - MEAN CELL HAEMOGLOBIN CONCENTRATION INCREASED [None]
  - MEMORY IMPAIRMENT [None]
  - MIGRAINE [None]
  - NO THERAPEUTIC RESPONSE [None]
  - PHOTOPHOBIA [None]
  - SOCIAL AVOIDANT BEHAVIOUR [None]
  - SPEECH DISORDER [None]
  - VISION BLURRED [None]
  - VISUAL DISTURBANCE [None]
